FAERS Safety Report 16879947 (Version 3)
Quarter: 2019Q4

REPORT INFORMATION
  Report Type: Spontaneous
  Country: US (occurrence: US)
  Receive Date: 20191003
  Receipt Date: 20191007
  Transmission Date: 20200122
  Serious: Yes (Other)
  Sender: FDA-Public Use
  Company Number: US-PFIZER INC-2016165296

PATIENT
  Age: 44 Year
  Sex: Female
  Weight: 58.97 kg

DRUGS (7)
  1. LYRICA [Suspect]
     Active Substance: PREGABALIN
     Indication: FOCAL DYSCOGNITIVE SEIZURES
     Dosage: 400 MG, DAILY (100MG, TWICE DAILY AND THEN 200MG, ONCE DAILY FOR A TOTAL OF 400MG A DAY)
     Route: 048
     Dates: start: 2004
  2. KEPPRA [Suspect]
     Active Substance: LEVETIRACETAM
     Indication: FOCAL DYSCOGNITIVE SEIZURES
     Dosage: 2500 MG, DAILY
  3. LYRICA [Suspect]
     Active Substance: PREGABALIN
     Indication: SEIZURE
     Dosage: 400 MG, DAILY
  4. ONFI [Suspect]
     Active Substance: CLOBAZAM
     Indication: FOCAL DYSCOGNITIVE SEIZURES
     Dosage: UNK
  5. LYRICA [Suspect]
     Active Substance: PREGABALIN
     Indication: PAIN
     Dosage: 400 MG, DAILY (100MG, TWICE DAILY AND THEN 200MG, ONCE DAILY FOR A TOTAL OF 400MG A DAY)
     Route: 048
     Dates: start: 2004
  6. LYRICA [Suspect]
     Active Substance: PREGABALIN
     Indication: EPILEPSY
     Dosage: 500 MG, DAILY
  7. AMLODIPINE [Concomitant]
     Active Substance: AMLODIPINE BESYLATE
     Indication: HYPERTENSION
     Dosage: 10 MG, 1X/DAY
     Route: 048
     Dates: start: 201602

REACTIONS (6)
  - Cerebrovascular accident [Unknown]
  - Hyperthyroidism [Not Recovered/Not Resolved]
  - Drug intolerance [Unknown]
  - Therapeutic product effect incomplete [Unknown]
  - Intervertebral disc degeneration [Not Recovered/Not Resolved]
  - Osteopenia [Not Recovered/Not Resolved]

NARRATIVE: CASE EVENT DATE: 2005
